FAERS Safety Report 4866860-5 (Version None)
Quarter: 2005Q4

REPORT INFORMATION
  Report Type: 
  Country: None (occurrence: None)
  Receive Date: 20051222
  Receipt Date: 20051209
  Transmission Date: 20060501
  Serious: Yes (Hospitalization, Other)
  Sender: FDA-Public Use
  Company Number: HQWYE789101DEC05

PATIENT
  Age: 48 Year
  Sex: Male

DRUGS (6)
  1. RAPAMUNE [Suspect]
     Indication: PROPHYLAXIS AGAINST TRANSPLANT REJECTION
     Dosage: ORAL; 2 MG 1X PER 1 DAY ORAL; 4 MG 1X PER 1 DAY ORAL
     Route: 048
     Dates: start: 20051015, end: 20051025
  2. RAPAMUNE [Suspect]
     Indication: PROPHYLAXIS AGAINST TRANSPLANT REJECTION
     Dosage: ORAL; 2 MG 1X PER 1 DAY ORAL; 4 MG 1X PER 1 DAY ORAL
     Route: 048
     Dates: start: 20051016, end: 20051026
  3. RAPAMUNE [Suspect]
     Indication: PROPHYLAXIS AGAINST TRANSPLANT REJECTION
     Dosage: ORAL; 2 MG 1X PER 1 DAY ORAL; 4 MG 1X PER 1 DAY ORAL
     Route: 048
     Dates: start: 20051027
  4. CYSLOSPORINE                 (CYCLOSPORINE) [Concomitant]
  5. PREDNISONE [Concomitant]
  6. BACTRIM [Concomitant]

REACTIONS (8)
  - BLOOD CREATININE INCREASED [None]
  - CONDITION AGGRAVATED [None]
  - HAEMATOCRIT DECREASED [None]
  - HAEMOGLOBIN DECREASED [None]
  - HYDROCELE [None]
  - LYMPHOCELE [None]
  - PAIN [None]
  - POST PROCEDURAL COMPLICATION [None]
